FAERS Safety Report 22084127 (Version 1)
Quarter: 2023Q1

REPORT INFORMATION
  Report Type: Spontaneous
  Country: US (occurrence: US)
  Receive Date: 20230310
  Receipt Date: 20230310
  Transmission Date: 20230418
  Serious: No
  Sender: FDA-Public Use
  Company Number: US-VERTEX PHARMACEUTICALS-2021-007635

PATIENT
  Sex: Female

DRUGS (1)
  1. TRIKAFTA [Suspect]
     Active Substance: ELEXACAFTOR\IVACAFTOR\TEZACAFTOR
     Indication: Cystic fibrosis
     Dosage: UNKNOWN DOSAGE REGIMEN
     Route: 048
     Dates: start: 20200226

REACTIONS (9)
  - Weight increased [Recovering/Resolving]
  - Mental disorder [Not Recovered/Not Resolved]
  - Aphonia [Unknown]
  - Respiratory tract congestion [Not Recovered/Not Resolved]
  - Productive cough [Unknown]
  - Energy increased [Unknown]
  - Insomnia [Not Recovered/Not Resolved]
  - Depressed mood [Unknown]
  - Anxiety [Unknown]

NARRATIVE: CASE EVENT DATE: 20200101
